FAERS Safety Report 18182835 (Version 1)
Quarter: 2020Q3

REPORT INFORMATION
  Report Type: Spontaneous
  Country: US (occurrence: US)
  Receive Date: 20200821
  Receipt Date: 20200821
  Transmission Date: 20201103
  Serious: No
  Sender: FDA-Public Use
  Company Number: US-BAUSCH-BL-2020-023272

PATIENT
  Age: 95 Year
  Sex: Female

DRUGS (2)
  1. BEPREVE [Suspect]
     Active Substance: BEPOTASTINE BESILATE
     Indication: EYE PRURITUS
     Dosage: SAMPLES, 1 DROP IN EACH EYE, USED ONLY ONE TIME
     Route: 047
     Dates: start: 20200812, end: 20200812
  2. BEPREVE [Suspect]
     Active Substance: BEPOTASTINE BESILATE
     Indication: DRY EYE

REACTIONS (4)
  - Throat tightness [Unknown]
  - Secretion discharge [Unknown]
  - Expired product administered [Unknown]
  - Product prescribing error [Unknown]

NARRATIVE: CASE EVENT DATE: 2020
